FAERS Safety Report 15837251 (Version 1)
Quarter: 2018Q4

REPORT INFORMATION
  Report Type: Spontaneous
  Country: US (occurrence: US)
  Receive Date: 20181220
  Receipt Date: 20181220
  Transmission Date: 20190205
  Serious: Yes (Hospitalization)
  Sender: FDA-Public Use
  Company Number: None

PATIENT
  Age: 63 Year
  Sex: Female

DRUGS (2)
  1. FERROUS SULFATE. [Suspect]
     Active Substance: FERROUS SULFATE
  2. CAPECITABINE TAB 500MG [Suspect]
     Active Substance: CAPECITABINE
     Dates: start: 20180609

REACTIONS (2)
  - Pulmonary oedema [None]
  - Respiratory distress [None]

NARRATIVE: CASE EVENT DATE: 20181207
